FAERS Safety Report 23171697 (Version 1)
Quarter: 2023Q4

REPORT INFORMATION
  Report Type: Spontaneous
  Country: EG (occurrence: EG)
  Receive Date: 20231110
  Receipt Date: 20231110
  Transmission Date: 20240109
  Serious: Yes (Other)
  Sender: FDA-Public Use
  Company Number: EG-MYLANLABS-2023M1120540

PATIENT
  Age: 7 Decade
  Sex: Male

DRUGS (3)
  1. FLUOROURACIL [Suspect]
     Active Substance: FLUOROURACIL
     Indication: Adenocarcinoma of colon
     Dosage: UNK UNK, RECEIVED 12 CYCLES IN FOLFOLX-4 REGIMEN
     Route: 065
  2. LEUCOVORIN [Suspect]
     Active Substance: LEUCOVORIN\LEUCOVORIN CALCIUM
     Indication: Adenocarcinoma of colon
     Dosage: UNK, RECEIVED 12 CYCLES IN FOLFOLX-4 REGIMEN
     Route: 065
  3. OXALIPLATIN [Suspect]
     Active Substance: OXALIPLATIN
     Indication: Adenocarcinoma of colon
     Dosage: UNK, ~RECEIVED 12 CYCLES IN FOLFOLX-4 REGIMEN
     Route: 065

REACTIONS (1)
  - Chronic myeloid leukaemia [Unknown]
